FAERS Safety Report 6746920-4 (Version None)
Quarter: 2010Q2

REPORT INFORMATION
  Report Type: 
  Country: None (occurrence: None)
  Receive Date: 20100528
  Receipt Date: 20091013
  Transmission Date: 20101027
  Serious: No
  Sender: FDA-Public Use
  Company Number: US-ASTRAZENECA-2009SE31730

PATIENT
  Sex: Female

DRUGS (3)
  1. PRILOSEC OTC [Suspect]
     Route: 048
  2. PRILOSEC OTC [Suspect]
     Route: 048
     Dates: start: 20090904, end: 20091011
  3. THYROID THERAPY [Concomitant]
     Dosage: UNKNOWN

REACTIONS (4)
  - ARTHRALGIA [None]
  - INCORRECT DOSE ADMINISTERED [None]
  - MUSCULOSKELETAL PAIN [None]
  - PAIN IN EXTREMITY [None]
